FAERS Safety Report 13738588 (Version 1)
Quarter: 2017Q3

REPORT INFORMATION
  Report Type: Report from Study
  Country: US (occurrence: US)
  Receive Date: 20170710
  Receipt Date: 20170710
  Transmission Date: 20171127
  Serious: No
  Sender: FDA-Public Use
  Company Number: US-SAOL THERAPEUTICS-2017SAO00187

PATIENT
  Sex: Female

DRUGS (30)
  1. BACLOFEN. [Suspect]
     Active Substance: BACLOFEN
     Dosage: 280.07 ?G, \DAY
     Route: 037
     Dates: start: 20160728
  2. DILAUDID [Suspect]
     Active Substance: HYDROMORPHONE HYDROCHLORIDE
     Dosage: 2.852 MG, \DAY
     Route: 037
     Dates: start: 20161117
  3. BACLOFEN. [Suspect]
     Active Substance: BACLOFEN
     Dosage: 185.47 ?G, \DAY
     Route: 037
     Dates: start: 20151210
  4. BACLOFEN. [Suspect]
     Active Substance: BACLOFEN
     Dosage: 434.1 ?G, \DAY
     Route: 037
     Dates: start: 20160922
  5. DILAUDID [Suspect]
     Active Substance: HYDROMORPHONE HYDROCHLORIDE
     Dosage: 5.156 MG, \DAY
     Route: 037
     Dates: start: 20160922
  6. DILAUDID [Suspect]
     Active Substance: HYDROMORPHONE HYDROCHLORIDE
     Dosage: UNK
  7. DILAUDID [Suspect]
     Active Substance: HYDROMORPHONE HYDROCHLORIDE
     Dosage: 3.500 MG, \DAY
     Route: 037
     Dates: start: 20160728
  8. DILAUDID [Suspect]
     Active Substance: HYDROMORPHONE HYDROCHLORIDE
     Dosage: 4.813 MG, \DAY
     Route: 037
     Dates: start: 20161117
  9. BUPIVACAINE. [Suspect]
     Active Substance: BUPIVACAINE
     Dosage: 5.340 MG, \DAY
     Route: 037
     Dates: start: 20160128
  10. BUPIVACAINE. [Suspect]
     Active Substance: BUPIVACAINE
     Dosage: 6.401 MG, \DAY
     Route: 037
     Dates: start: 20160922
  11. BACLOFEN. [Suspect]
     Active Substance: BACLOFEN
     Dosage: 160.21 ?G, \DAY
     Dates: start: 20160128
  12. BACLOFEN. [Suspect]
     Active Substance: BACLOFEN
     Dosage: 228.22 ?G, \DAY
     Route: 037
     Dates: start: 20161117
  13. DILAUDID [Suspect]
     Active Substance: HYDROMORPHONE HYDROCHLORIDE
     Dosage: 6.182 MG, \DAY
     Route: 037
     Dates: start: 20151210
  14. BUPIVACAINE. [Suspect]
     Active Substance: BUPIVACAINE
     Dosage: 4.945 MG, \DAY
  15. BACLOFEN. [Suspect]
     Active Substance: BACLOFEN
     Dosage: 412.53 ?G, \DAY
     Route: 037
  16. DILAUDID [Suspect]
     Active Substance: HYDROMORPHONE HYDROCHLORIDE
     Dosage: 3.200 MG, \DAY
     Route: 037
     Dates: start: 20160922
  17. DILAUDID [Suspect]
     Active Substance: HYDROMORPHONE HYDROCHLORIDE
     Dosage: UNK
  18. BUPIVACAINE. [Suspect]
     Active Substance: BUPIVACAINE
     Dosage: 5.4 MG, \DAY
     Route: 037
  19. BUPIVACAINE. [Suspect]
     Active Substance: BUPIVACAINE
     Dosage: 7.002 MG, \DAY
     Route: 037
     Dates: start: 20160728
  20. DILAUDID [Suspect]
     Active Substance: HYDROMORPHONE HYDROCHLORIDE
     Dosage: 5.426 MG, \DAY
     Route: 037
     Dates: start: 20160728
  21. BUPIVACAINE. [Suspect]
     Active Substance: BUPIVACAINE
     Dosage: 10.313 MG, \DAY
     Route: 037
  22. BUPIVACAINE. [Suspect]
     Active Substance: BUPIVACAINE
     Dosage: 5.706 MG, \DAY
     Route: 037
     Dates: start: 20161117
  23. BACLOFEN. [Suspect]
     Active Substance: BACLOFEN
     Dosage: 120.16 ?G, \DAY
     Dates: start: 20151210
  24. BACLOFEN. [Suspect]
     Active Substance: BACLOFEN
     Dosage: 256.04 ?G, \DAY
     Route: 037
  25. BACLOFEN. [Suspect]
     Active Substance: BACLOFEN
     Dosage: 385.09 ?G, \DAY
     Route: 037
  26. DILAUDID [Suspect]
     Active Substance: HYDROMORPHONE HYDROCHLORIDE
     Dosage: 4.005 MG, \DAY
     Route: 037
     Dates: start: 20151210
  27. BUPIVACAINE. [Suspect]
     Active Substance: BUPIVACAINE
     Dosage: 7.726 MG, \DAY
  28. BUPIVACAINE. [Suspect]
     Active Substance: BUPIVACAINE
     Dosage: 3.204 MG, \DAY
     Route: 037
     Dates: start: 20151210
  29. BUPIVACAINE. [Suspect]
     Active Substance: BUPIVACAINE
     Dosage: 10.853 MG, \DAY
     Route: 037
     Dates: start: 20160728
  30. BUPIVACAINE. [Suspect]
     Active Substance: BUPIVACAINE
     Dosage: 9.627 MG, \DAY
     Route: 037
     Dates: start: 20161117

REACTIONS (5)
  - Hypoaesthesia [Recovered/Resolved]
  - Disturbance in attention [Recovered/Resolved]
  - Burning sensation [Recovered/Resolved]
  - Urinary retention [Recovered/Resolved]
  - Hyperhidrosis [Recovered/Resolved]

NARRATIVE: CASE EVENT DATE: 20160316
